FAERS Safety Report 16731121 (Version 1)
Quarter: 2019Q4

REPORT INFORMATION
  Report Type: Spontaneous
  Country: US (occurrence: US)
  Receive Date: 20190822
  Receipt Date: 20190822
  Transmission Date: 20200122
  Serious: Yes (Other)
  Sender: FDA-Public Use
  Company Number: None

PATIENT
  Age: 69 Year
  Sex: Female
  Weight: 67.5 kg

DRUGS (9)
  1. LOMOTIL 5 MG TODAY [Concomitant]
  2. IODINE RADIOISOTOPE ADMINISTERED BY HOSPITAL. [Suspect]
     Active Substance: IODINE
     Indication: COMPUTERISED TOMOGRAM
     Dates: start: 20190821, end: 20190821
  3. AMLODIPINE 5 MG DAILY [Concomitant]
  4. MULTIVITAMINS [Concomitant]
     Active Substance: VITAMINS
  5. PAMINE 5 MG TID [Concomitant]
  6. PREDNISONE 10 MG DAILY [Concomitant]
  7. THERALAC [Concomitant]
  8. THYROID .25 DAILY [Concomitant]
  9. BIT D 10000 DAILY [Concomitant]

REACTIONS (1)
  - Swelling [None]

NARRATIVE: CASE EVENT DATE: 20190822
